FAERS Safety Report 8355217-0 (Version None)
Quarter: 2012Q2

REPORT INFORMATION
  Report Type: 
  Country: None (occurrence: None)
  Receive Date: 20120511
  Receipt Date: 20120430
  Transmission Date: 20120825
  Serious: Yes (Hospitalization, Other)
  Sender: FDA-Public Use
  Company Number: US-ELI_LILLY_AND_COMPANY-US201203006904

PATIENT
  Sex: Female

DRUGS (16)
  1. FORTEO [Suspect]
     Dosage: 20 UG, QD
     Dates: end: 20120404
  2. LOSARTAN POTASSIUM AND HYDROCHLOROTHIAZIDE [Concomitant]
  3. CALCIUM CITRATE [Concomitant]
     Dosage: 600 MG, UNK
  4. ALLEGRA [Concomitant]
     Dosage: 180 MG, UNK
  5. CORTISONE ACETATE [Concomitant]
  6. CRESTOR [Concomitant]
  7. METFORMIN HCL [Concomitant]
     Dosage: 500 MG, BID
  8. BIOFLEX                            /00943602/ [Concomitant]
  9. LOVAZA [Concomitant]
  10. FISH OIL [Concomitant]
  11. NEXIUM [Concomitant]
     Dosage: 40 MG, QD
  12. VITAMIN D [Concomitant]
     Dosage: 6000 IU, UNK
  13. SINGULAIR [Concomitant]
  14. FORTEO [Suspect]
     Indication: OSTEOPOROSIS
     Dosage: 20 UG, QD
     Dates: start: 20120208
  15. LEVOTHYROXINE SODIUM [Concomitant]
  16. NASONEX [Concomitant]

REACTIONS (3)
  - HEPATIC ENZYME INCREASED [None]
  - LOWER LIMB FRACTURE [None]
  - CYST [None]
